FAERS Safety Report 18756552 (Version 1)
Quarter: 2021Q1

REPORT INFORMATION
  Report Type: Spontaneous
  Country: US (occurrence: US)
  Receive Date: 20210118
  Receipt Date: 20210118
  Transmission Date: 20210419
  Serious: No
  Sender: FDA-Public Use
  Company Number: None

PATIENT
  Age: 51 Year
  Sex: Female
  Weight: 54 kg

DRUGS (6)
  1. GAMMAKED [Suspect]
     Active Substance: HUMAN IMMUNOGLOBULIN G
     Indication: CHRONIC INFLAMMATORY DEMYELINATING POLYRADICULONEUROPATHY
     Dosage: ?          OTHER FREQUENCY:5 DAYS Q4W;?
     Route: 042
     Dates: start: 20210111, end: 20210115
  2. SODIUM CHLORIDE 0.9% 250 ML [Concomitant]
     Dates: start: 20210111, end: 20210115
  3. DIPHENHYDRAMINE 25 MG CAPS [Concomitant]
     Dates: start: 20210111, end: 20210115
  4. PREDNISONE ORAL TABLET 2.5 MG [Concomitant]
     Dates: start: 20210111, end: 20210115
  5. ACETAMINOPHEN 325 MG PO [Concomitant]
     Dates: start: 20210111, end: 20210115
  6. GAMMAKED [Suspect]
     Active Substance: HUMAN IMMUNOGLOBULIN G
     Indication: CHRONIC INFLAMMATORY DEMYELINATING POLYRADICULONEUROPATHY
     Dosage: ?          OTHER FREQUENCY:5 DAYS Q4W;?
     Route: 042
     Dates: start: 20210111, end: 20210115

REACTIONS (5)
  - Adverse drug reaction [None]
  - Fatigue [None]
  - Suspected product quality issue [None]
  - Rash [None]
  - Feeling abnormal [None]

NARRATIVE: CASE EVENT DATE: 20210111
